FAERS Safety Report 11896135 (Version 1)
Quarter: 2016Q1

REPORT INFORMATION
  Report Type: Spontaneous
  Country: US (occurrence: US)
  Receive Date: 20160107
  Receipt Date: 20160107
  Transmission Date: 20160526
  Serious: No
  Sender: FDA-Public Use
  Company Number: US-ROCHE-1536955

PATIENT
  Sex: Male

DRUGS (8)
  1. RITUXAN [Suspect]
     Active Substance: RITUXIMAB
     Dosage: SECOND INFUSION
     Route: 042
     Dates: start: 20150129
  2. FLONASE (UNITED STATES) [Concomitant]
  3. RITUXAN [Suspect]
     Active Substance: RITUXIMAB
     Dosage: THIRD INFUSION
     Route: 042
     Dates: start: 20150205
  4. OMEPRAZOLE. [Concomitant]
     Active Substance: OMEPRAZOLE
  5. FOLIC ACID. [Concomitant]
     Active Substance: FOLIC ACID
  6. RITUXAN [Suspect]
     Active Substance: RITUXIMAB
     Indication: CHRONIC LYMPHOCYTIC LEUKAEMIA
     Dosage: WEEKLY TIMES FOUR (EVERY OTHER WEEK APART)?FIRST INFUSION
     Route: 042
     Dates: start: 20150122
  7. B COMPLEX VITAMIN [Concomitant]
  8. PREDNISONE. [Concomitant]
     Active Substance: PREDNISONE
     Dosage: TAPERING DOSE
     Route: 065

REACTIONS (4)
  - Oedema peripheral [Recovered/Resolved]
  - Pain [Not Recovered/Not Resolved]
  - Muscle spasms [Not Recovered/Not Resolved]
  - Gait disturbance [Not Recovered/Not Resolved]
